FAERS Safety Report 17827873 (Version 7)
Quarter: 2021Q2

REPORT INFORMATION
  Report Type: Spontaneous
  Country: US (occurrence: US)
  Receive Date: 20200527
  Receipt Date: 20210603
  Transmission Date: 20210717
  Serious: No
  Sender: FDA-Public Use
  Company Number: US-SA-2020SA135683

PATIENT
  Age: 65 Year
  Sex: Female

DRUGS (5)
  1. DUPIXENT [Suspect]
     Active Substance: DUPILUMAB
     Indication: ASTHMA
     Dosage: 300 MG, QOW
     Route: 058
     Dates: start: 20200504
  2. VITAMIN D2 [Concomitant]
     Active Substance: ERGOCALCIFEROL
     Dosage: UNK
  3. OXYGEN. [Concomitant]
     Active Substance: OXYGEN
     Dosage: UNK
  4. BOTOX [Concomitant]
     Active Substance: ONABOTULINUMTOXINA
     Dosage: UNK, Q3M
  5. NUCALA [Suspect]
     Active Substance: MEPOLIZUMAB
     Dosage: UNK

REACTIONS (22)
  - Headache [Unknown]
  - Anxiety [Unknown]
  - Erythema [Unknown]
  - Chills [Unknown]
  - Bronchitis [Not Recovered/Not Resolved]
  - Vitamin D decreased [Unknown]
  - Dyspnoea [Unknown]
  - Cough [Not Recovered/Not Resolved]
  - Injection site bruising [Unknown]
  - Pneumonitis [Not Recovered/Not Resolved]
  - Urticaria [Unknown]
  - Injection site pain [Unknown]
  - Product use issue [Unknown]
  - Nausea [Recovered/Resolved]
  - Bone disorder [Unknown]
  - Vision blurred [Unknown]
  - Condition aggravated [Unknown]
  - Pruritus [Unknown]
  - Rash papular [Unknown]
  - Rash [Unknown]
  - Cold sweat [Recovered/Resolved]
  - Fatigue [Unknown]

NARRATIVE: CASE EVENT DATE: 2020
